FAERS Safety Report 9465900 (Version 2)
Quarter: 2013Q3

REPORT INFORMATION
  Report Type: Spontaneous
  Country: CA (occurrence: CA)
  Receive Date: 20130820
  Receipt Date: 20130930
  Transmission Date: 20140515
  Serious: Yes (Other)
  Sender: FDA-Public Use
  Company Number: CA-ASTELLAS-2013US008658

PATIENT
  Age: 51 Year
  Sex: Female

DRUGS (5)
  1. MYRBETRIQ [Suspect]
     Indication: HYPERTONIC BLADDER
     Dosage: 25 MG, UID/QD
     Route: 048
     Dates: start: 20130628
  2. AZOLOF [Concomitant]
     Indication: SLEEP DISORDER
     Dosage: 25 MG, UID/QD
     Route: 048
  3. NAPROXEN [Concomitant]
     Indication: ANTIINFLAMMATORY THERAPY
     Dosage: 100 MG, UID/QD
     Route: 048
  4. CETROLAINE [Concomitant]
     Indication: ANTIDEPRESSANT THERAPY
     Dosage: 200 MG, UNKNOWN/D
     Route: 048
  5. LORAZEPAM [Concomitant]
     Indication: ANXIETY
     Dosage: UNK
     Route: 048

REACTIONS (1)
  - Lung neoplasm [Not Recovered/Not Resolved]
